FAERS Safety Report 11050624 (Version 1)
Quarter: 2015Q2

REPORT INFORMATION
  Report Type: Spontaneous
  Country: ES (occurrence: ES)
  Receive Date: 20150421
  Receipt Date: 20150421
  Transmission Date: 20150821
  Serious: Yes (Other)
  Sender: FDA-Public Use
  Company Number: ES-AUROBINDO-AUR-APL-2015-03517

PATIENT
  Age: 49 Year
  Sex: Female

DRUGS (3)
  1. RITUXIMAB [Concomitant]
     Active Substance: RITUXIMAB
     Indication: HYPERSENSITIVITY VASCULITIS
     Dosage: UNK
     Route: 065
     Dates: start: 201107
  2. RIBAVIRIN. [Suspect]
     Active Substance: RIBAVIRIN
     Indication: CHRONIC HEPATITIS C
     Dosage: 1000 MG, DAILY
     Route: 065
     Dates: start: 201104
  3. PEGYLATED INTERFERON ALPHA NOS [Suspect]
     Active Substance: PEGINTERFERON ALFA-2A OR PEGINTERFERON ALFA-2B
     Indication: CHRONIC HEPATITIS C
     Dosage: 180 G, EVERY WEEK
     Route: 065
     Dates: start: 201104

REACTIONS (3)
  - Mucosal pigmentation [Not Recovered/Not Resolved]
  - Macule [Not Recovered/Not Resolved]
  - Burning sensation [Not Recovered/Not Resolved]
